FAERS Safety Report 12843269 (Version 1)
Quarter: 2016Q4

REPORT INFORMATION
  Report Type: Spontaneous
  Country: DE (occurrence: DE)
  Receive Date: 20161013
  Receipt Date: 20161013
  Transmission Date: 20170207
  Serious: Yes (Other)
  Sender: FDA-Public Use
  Company Number: ALCN2016DE006711

PATIENT
  Age: 84 Year
  Sex: Female

DRUGS (1)
  1. VITALUX PLUS [Suspect]
     Active Substance: VITAMINS
     Indication: VISUAL IMPAIRMENT
     Dosage: UNK
     Route: 048

REACTIONS (1)
  - Age-related macular degeneration [Unknown]
